FAERS Safety Report 20051423 (Version 8)
Quarter: 2022Q3

REPORT INFORMATION
  Report Type: Report from Study
  Country: CN (occurrence: CN)
  Receive Date: 20211110
  Receipt Date: 20220727
  Transmission Date: 20221027
  Serious: Yes (Death, Hospitalization)
  Sender: FDA-Public Use
  Company Number: CN-Blueprint Medicines Corporation-CS-CN-2021-002072

PATIENT
  Age: 53 Year
  Sex: Female
  Weight: 62 kg

DRUGS (8)
  1. PRALSETINIB [Suspect]
     Active Substance: PRALSETINIB
     Indication: Papillary thyroid cancer
     Dosage: THE LAST DOSE PRIOR TO EVENT ONSET DATE ON 03/NOV/2021.
     Route: 048
     Dates: start: 20210713
  2. PRALSETINIB [Suspect]
     Active Substance: PRALSETINIB
     Indication: Metastases to lung
  3. PRALSETINIB [Suspect]
     Active Substance: PRALSETINIB
     Indication: Metastases to kidney
  4. PRALSETINIB [Suspect]
     Active Substance: PRALSETINIB
     Indication: Metastases to lymph nodes
  5. LEVOTHYROXINE SODIUM [Concomitant]
     Active Substance: LEVOTHYROXINE SODIUM
     Indication: Thyroid disorder
     Route: 048
     Dates: start: 201406, end: 20211103
  6. LEVOTHYROXINE SODIUM [Concomitant]
     Active Substance: LEVOTHYROXINE SODIUM
     Route: 048
     Dates: start: 20211103, end: 20211105
  7. LEVOTHYROXINE SODIUM [Concomitant]
     Active Substance: LEVOTHYROXINE SODIUM
     Route: 048
     Dates: start: 20211103, end: 20211105
  8. VITAMIN K [Concomitant]
     Active Substance: PHYTONADIONE
     Indication: Thrombosis
     Route: 041
     Dates: start: 20211103, end: 20211105

REACTIONS (1)
  - Liver injury [Fatal]

NARRATIVE: CASE EVENT DATE: 20211103
